FAERS Safety Report 15135210 (Version 5)
Quarter: 2018Q4

REPORT INFORMATION
  Report Type: Report from Study
  Country: JP (occurrence: JP)
  Receive Date: 20180712
  Receipt Date: 20181017
  Transmission Date: 20190204
  Serious: Yes (Hospitalization, Other)
  Sender: FDA-Public Use
  Company Number: JP-BRISTOL-MYERS SQUIBB COMPANY-BMS-2018-064792

PATIENT
  Age: 71 Year
  Sex: Male
  Weight: 46.25 kg

DRUGS (15)
  1. FAMOTIDINE. [Concomitant]
     Active Substance: FAMOTIDINE
     Indication: GASTRITIS PROPHYLAXIS
     Dosage: 40 MG, UNK
     Route: 048
     Dates: start: 20170426
  2. BESOFTEN [Concomitant]
     Active Substance: PENTOSAN POLYSULFATE SODIUM
     Indication: DRY SKIN
     Dosage: UNK
     Route: 061
     Dates: start: 20170713
  3. NEOSTELIN GREEN [Concomitant]
     Active Substance: BENZETHONIUM CHLORIDE
     Indication: TOOTHACHE
     Dosage: UNK
     Route: 065
     Dates: start: 20180510
  4. THYRADIN-S [Concomitant]
     Active Substance: LEVOTHYROXINE
     Indication: HYPOTHYROIDISM
     Dosage: 50 ?G/DAY, UNK
     Route: 048
     Dates: start: 20180822
  5. TAKECAB [Concomitant]
     Active Substance: VONOPRAZAN FUMURATE
     Indication: GASTRITIS PROPHYLAXIS
     Dosage: 20 MG, QD
     Route: 048
     Dates: start: 20180703
  6. RAMUCIRUMAB [Suspect]
     Active Substance: RAMUCIRUMAB
     Indication: METASTATIC GASTRIC CANCER
     Dosage: 8 MG/KG, D1, 15 4WKS 1 CYCLE
     Route: 065
     Dates: start: 20170823, end: 20180627
  7. PACLITAXEL. [Suspect]
     Active Substance: PACLITAXEL
     Indication: PRODUCT USED FOR UNKNOWN INDICATION
     Dosage: 60 MG/M2, QCYCLE
     Route: 065
     Dates: start: 20180221, end: 20180919
  8. PACLITAXEL. [Suspect]
     Active Substance: PACLITAXEL
     Indication: PRODUCT USED FOR UNKNOWN INDICATION
     Dosage: 70 MG/M2, QCYCLE
     Route: 065
     Dates: start: 20171122, end: 20180214
  9. SENNOSIDE                          /00571901/ [Concomitant]
     Active Substance: SENNOSIDES A AND B
     Indication: CONSTIPATION
     Dosage: 12 MG, UNK
     Route: 048
     Dates: start: 20170816
  10. PACLITAXEL. [Suspect]
     Active Substance: PACLITAXEL
     Indication: METASTATIC GASTRIC CANCER
     Dosage: 80 MG/M2, QCYCLE
     Route: 065
     Dates: start: 20170823, end: 20171115
  11. LYRICA [Concomitant]
     Active Substance: PREGABALIN
     Indication: NEUROPATHY PERIPHERAL
     Dosage: 150 MG, QD
     Route: 048
     Dates: start: 20180425
  12. NIVOLUMAB [Suspect]
     Active Substance: NIVOLUMAB
     Indication: METASTATIC GASTRIC CANCER
     Dosage: 3 MG/KG, D1, D15 4WKS, 1 CYCLE
     Route: 065
     Dates: start: 20170823, end: 20180919
  13. MAGNESIUM OXIDE. [Concomitant]
     Active Substance: MAGNESIUM OXIDE
     Indication: CONSTIPATION
     Dosage: 330 MG, UNK
     Route: 048
     Dates: start: 20170628
  14. CALONAL [Concomitant]
     Active Substance: ACETAMINOPHEN
     Indication: ABDOMINAL PAIN UPPER
     Dosage: 500 MG, UNK
     Route: 048
     Dates: start: 20180616
  15. FERROUS SULFATE. [Concomitant]
     Active Substance: FERROUS SULFATE
     Indication: ANAEMIA
     Dosage: 105 MG/ DAY, UNK
     Route: 048
     Dates: start: 20180711

REACTIONS (2)
  - Anaemia [Recovered/Resolved]
  - Upper gastrointestinal haemorrhage [Recovered/Resolved]

NARRATIVE: CASE EVENT DATE: 20180703
